FAERS Safety Report 25980322 (Version 1)
Quarter: 2025Q4

REPORT INFORMATION
  Report Type: Spontaneous
  Country: US (occurrence: US)
  Receive Date: 20251030
  Receipt Date: 20251030
  Transmission Date: 20260119
  Serious: No
  Sender: LNHC, INC.
  Company Number: US-LNHC, INC.-2025PEL00011

PATIENT
  Age: 5 Year
  Sex: Female

DRUGS (3)
  1. ZELSUVMI [Suspect]
     Active Substance: BERDAZIMER SODIUM
     Indication: Molluscum contagiosum
     Dosage: UNK UNK, 1X/DAY, ON APPROXIMATELY 30 AREAS
     Route: 061
     Dates: start: 20250911
  2. Children vitamin [Concomitant]
  3. PROBIOTICS NOS [Concomitant]
     Active Substance: PROBIOTICS NOS

REACTIONS (2)
  - Application site erythema [Recovered/Resolved]
  - Application site pain [Recovered/Resolved]

NARRATIVE: CASE EVENT DATE: 20250901
